FAERS Safety Report 17315051 (Version 5)
Quarter: 2022Q3

REPORT INFORMATION
  Report Type: Spontaneous
  Country: DE (occurrence: DE)
  Receive Date: 20200124
  Receipt Date: 20220920
  Transmission Date: 20221026
  Serious: Yes (Death)
  Sender: FDA-Public Use
  Company Number: None

PATIENT
  Sex: Female

DRUGS (12)
  1. METHOTREXATE [Suspect]
     Active Substance: METHOTREXATE
     Indication: Diffuse large B-cell lymphoma
     Dosage: UNK (1ST LINE, R-CHOP, 6+2 CYCLES)
     Route: 065
     Dates: start: 201711, end: 201805
  2. AZATHIOPRINE [Suspect]
     Active Substance: AZATHIOPRINE
     Indication: Diffuse large B-cell lymphoma
     Dosage: UNK (1ST LINE, R-CHOP, 6+2 CYCLES)
     Route: 065
     Dates: start: 201711, end: 201805
  3. PREDNISONE [Suspect]
     Active Substance: PREDNISONE
     Indication: Diffuse large B-cell lymphoma
     Dosage: 60 MG, QD
     Route: 065
     Dates: start: 20190212
  4. CYCLOPHOSPHAMIDE [Suspect]
     Active Substance: CYCLOPHOSPHAMIDE
     Indication: Diffuse large B-cell lymphoma
     Dosage: UNK (1ST LINE, R-CHOP, 6+2 CYCLES)
     Route: 065
     Dates: start: 201711, end: 201805
  5. BENDAMUSTINE [Suspect]
     Active Substance: BENDAMUSTINE
     Indication: Diffuse large B-cell lymphoma
     Dosage: UNK
     Route: 065
     Dates: start: 20190214
  6. DEXAMETHASONE [Suspect]
     Active Substance: DEXAMETHASONE
     Indication: Diffuse large B-cell lymphoma
     Dosage: UNK (1ST LINE, R-CHOP , 6+2 CYCLES)
     Route: 065
     Dates: start: 201711, end: 201805
  7. RITUXIMAB [Suspect]
     Active Substance: RITUXIMAB
     Indication: Diffuse large B-cell lymphoma
     Dosage: UNK (1ST LINE, R-CHOP, 6+2 CYCLES)
     Route: 065
     Dates: start: 201711, end: 201805
  8. RITUXIMAB [Suspect]
     Active Substance: RITUXIMAB
     Dosage: UNK (2ND LINE, R-GEMOX, 3 CYCLES)
     Route: 065
     Dates: start: 201808, end: 201811
  9. RITUXIMAB [Suspect]
     Active Substance: RITUXIMAB
     Dosage: UNK (FURTHER LINES, RADIOTHERAPY,40GY)
     Route: 065
     Dates: start: 201812, end: 201901
  10. THALIDOMIDE [Suspect]
     Active Substance: THALIDOMIDE
     Indication: Diffuse large B-cell lymphoma
     Dosage: UNK (1ST LINE, R-CHOP, 6+2 CYCLES)
     Route: 065
     Dates: start: 201711, end: 201805
  11. ORGADRONE [Suspect]
     Active Substance: DEXAMETHASONE SODIUM PHOSPHATE
     Indication: Diffuse large B-cell lymphoma
     Dosage: UNK (1ST LINE, R-CHOP , 6+2 CYCLES)
     Route: 065
     Dates: start: 201711, end: 201805
  12. IMURAN [Suspect]
     Active Substance: AZATHIOPRINE
     Indication: Diffuse large B-cell lymphoma
     Dosage: UNK (1ST LINE, R-CHOP , 6+2 CYCLES)
     Route: 065
     Dates: start: 201711, end: 201805

REACTIONS (4)
  - Death [Fatal]
  - Blood lactate dehydrogenase increased [Unknown]
  - Aspartate aminotransferase increased [Unknown]
  - Off label use [Unknown]
